FAERS Safety Report 24386414 (Version 2)
Quarter: 2024Q4

REPORT INFORMATION
  Report Type: Spontaneous
  Country: DE (occurrence: DE)
  Receive Date: 20241002
  Receipt Date: 20241105
  Transmission Date: 20250114
  Serious: Yes (Hospitalization, Other)
  Sender: ABBVIE
  Company Number: DE-ABBVIE-5945544

PATIENT
  Age: 40 Year
  Sex: Female
  Weight: 110 kg

DRUGS (4)
  1. RINVOQ [Suspect]
     Active Substance: UPADACITINIB
     Indication: Psoriatic arthropathy
     Route: 048
     Dates: start: 20240925
  2. RINVOQ [Suspect]
     Active Substance: UPADACITINIB
     Indication: Psoriatic arthropathy
     Route: 048
  3. RINVOQ [Suspect]
     Active Substance: UPADACITINIB
     Indication: Psoriatic arthropathy
     Route: 048
     Dates: start: 20240920, end: 20240924
  4. ETORICOXIB [Concomitant]
     Active Substance: ETORICOXIB
     Indication: Adjuvant therapy
     Route: 048
     Dates: start: 20240920, end: 20240925

REACTIONS (6)
  - Hypertensive crisis [Recovered/Resolved]
  - Headache [Unknown]
  - Cerebral venous sinus thrombosis [Unknown]
  - Dizziness [Unknown]
  - Malaise [Unknown]
  - Dyspnoea [Unknown]

NARRATIVE: CASE EVENT DATE: 20240901
